FAERS Safety Report 12707016 (Version 3)
Quarter: 2016Q3

REPORT INFORMATION
  Report Type: Report from Study
  Country: MX (occurrence: MX)
  Receive Date: 20160901
  Receipt Date: 20160921
  Transmission Date: 20161109
  Serious: Yes (Other)
  Sender: FDA-Public Use
  Company Number: PHHY2016MX019003

PATIENT
  Age: 54 Year
  Sex: Male
  Weight: 90 kg

DRUGS (6)
  1. TEGRETOL [Suspect]
     Active Substance: CARBAMAZEPINE
     Indication: HEADACHE
     Dosage: 4 OT, QD
     Route: 065
  2. TEGRETOL [Suspect]
     Active Substance: CARBAMAZEPINE
     Indication: TRIGEMINAL NEURALGIA
     Dosage: 3 OT, UNK
     Route: 065
  3. ALMETEC//OLMESARTAN MEDOXOMIL [Concomitant]
     Indication: BLOOD PRESSURE ABNORMAL
     Dosage: 1 OT, QD (SINCE MORE THAN 5 YEARS AGO)
     Route: 065
  4. JANUVIA [Concomitant]
     Active Substance: SITAGLIPTIN PHOSPHATE
     Indication: DIABETES MELLITUS
     Dosage: 1 OT, QD
     Route: 065
  5. TYLENOL [Concomitant]
     Active Substance: ACETAMINOPHEN
     Indication: PRODUCT USED FOR UNKNOWN INDICATION
     Route: 065
  6. TEGRETOL [Suspect]
     Active Substance: CARBAMAZEPINE
     Dosage: 4 DF (200 MG), QD (TWO DAILY DOSES OF TWO TABLETS)
     Route: 065

REACTIONS (45)
  - Chikungunya virus infection [Recovered/Resolved]
  - Arthralgia [Unknown]
  - Oropharyngeal pain [Unknown]
  - Muscle twitching [Unknown]
  - Spinal pain [Unknown]
  - Dyspnoea [Recovered/Resolved]
  - Drug ineffective [Unknown]
  - Muscular weakness [Unknown]
  - Feeling abnormal [Unknown]
  - Depressed mood [Unknown]
  - Eating disorder [Unknown]
  - Tonsillitis [Unknown]
  - Face injury [Unknown]
  - Pneumonia [Unknown]
  - Joint instability [Recovering/Resolving]
  - Malaise [Unknown]
  - Mental impairment [Unknown]
  - Disturbance in attention [Unknown]
  - Dysphonia [Unknown]
  - Chillblains [Unknown]
  - Excessive eye blinking [Unknown]
  - Chest pain [Unknown]
  - Exostosis [Unknown]
  - Pyrexia [Unknown]
  - Pain [Unknown]
  - Vomiting [Unknown]
  - Memory impairment [Unknown]
  - Influenza [Unknown]
  - Pain in extremity [Unknown]
  - Gait disturbance [Unknown]
  - Dysstasia [Unknown]
  - Trigeminal neuralgia [Unknown]
  - Tic [Unknown]
  - Abasia [Not Recovered/Not Resolved]
  - Fall [Unknown]
  - Pharyngitis [Recovered/Resolved]
  - Diarrhoea [Not Recovered/Not Resolved]
  - Weight increased [Unknown]
  - Insomnia [Unknown]
  - Nausea [Unknown]
  - Cough [Unknown]
  - Nasal congestion [Recovered/Resolved]
  - Limb discomfort [Unknown]
  - Throat irritation [Recovered/Resolved]
  - Anxiety [Unknown]

NARRATIVE: CASE EVENT DATE: 2015
